FAERS Safety Report 20075692 (Version 2)
Quarter: 2022Q1

REPORT INFORMATION
  Report Type: Spontaneous
  Country: PT (occurrence: PT)
  Receive Date: 20211116
  Receipt Date: 20220110
  Transmission Date: 20220423
  Serious: Yes (Hospitalization, Other)
  Sender: FDA-Public Use
  Company Number: PT-MYLANLABS-2021M1079193

PATIENT
  Age: 73 Year
  Sex: Male

DRUGS (2)
  1. GEMCITABINE HYDROCHLORIDE [Suspect]
     Active Substance: GEMCITABINE HYDROCHLORIDE
     Indication: Squamous cell carcinoma of lung
     Dosage: UNK UNK, UNKNOWN
     Route: 065
  2. CARBOPLATIN [Suspect]
     Active Substance: CARBOPLATIN
     Indication: Squamous cell carcinoma of lung
     Dosage: UNK, UNKNOWN
     Route: 065

REACTIONS (12)
  - Oesophagitis [Recovering/Resolving]
  - Pallor [Unknown]
  - Psychomotor hyperactivity [Unknown]
  - Normochromic normocytic anaemia [Unknown]
  - Haematemesis [Unknown]
  - Melaena [Unknown]
  - Disorientation [Unknown]
  - Acute kidney injury [Unknown]
  - Bradycardia [Unknown]
  - Hypotension [Unknown]
  - Fatigue [Unknown]
  - Off label use [Unknown]
